FAERS Safety Report 7851772-5 (Version None)
Quarter: 2011Q4

REPORT INFORMATION
  Report Type: 
  Country: None (occurrence: None)
  Receive Date: 20111013
  Receipt Date: 20111003
  Transmission Date: 20120403
  Serious: Yes (Disabling, Other)
  Sender: FDA-Public Use
  Company Number: 2011028064

PATIENT
  Age: 67 Year
  Sex: Female
  Weight: 78.9259 kg

DRUGS (30)
  1. PULMICORT [Concomitant]
  2. CLARINEX (NARINE) [Concomitant]
  3. AMLODIPINE BESYLATE [Concomitant]
  4. CODEINE-GUAI (CHERACOL /00693301/) [Concomitant]
  5. HIZENTRA [Suspect]
     Indication: IMMUNODEFICIENCY COMMON VARIABLE
     Dosage: SEE IMAGE
     Route: 058
     Dates: start: 20110330, end: 20110330
  6. HIZENTRA [Suspect]
     Indication: IMMUNODEFICIENCY COMMON VARIABLE
     Dosage: SEE IMAGE
     Route: 058
     Dates: start: 20110302
  7. HIZENTRA [Suspect]
     Indication: IMMUNODEFICIENCY COMMON VARIABLE
     Dosage: SEE IMAGE
     Route: 058
     Dates: start: 20110330, end: 20110330
  8. HIZENTRA [Suspect]
     Indication: IMMUNODEFICIENCY COMMON VARIABLE
     Dosage: SEE IMAGE
     Route: 058
     Dates: start: 20110302
  9. HIZENTRA [Suspect]
     Indication: IMMUNODEFICIENCY COMMON VARIABLE
     Dosage: SEE IMAGE
     Route: 058
     Dates: start: 20110302, end: 20110302
  10. HIZENTRA [Suspect]
     Indication: IMMUNODEFICIENCY COMMON VARIABLE
     Dosage: SEE IMAGE
     Route: 058
     Dates: start: 20110330, end: 20110330
  11. HIZENTRA [Suspect]
     Indication: IMMUNODEFICIENCY COMMON VARIABLE
     Dosage: SEE IMAGE
     Route: 058
     Dates: start: 20110302, end: 20110302
  12. HIZENTRA [Suspect]
  13. EPIPEN [Concomitant]
  14. OMEPRAZOLE [Concomitant]
  15. HIZENTRA [Suspect]
  16. LANTUS [Concomitant]
  17. FLUTICASONE PROPIONATE [Concomitant]
  18. DIPHENHYDRAMINE HCL [Concomitant]
  19. HIZENTRA [Suspect]
  20. HIZENTRA [Suspect]
  21. MULTIVITAMIN [Concomitant]
  22. HIZENTRA [Suspect]
  23. METFORM HCL (METFORMIN HYDROCHLORIDE) [Concomitant]
  24. MICARDIS [Concomitant]
  25. PROAIR HFA (PROCATEROL HYDROCHLORIDE) [Concomitant]
  26. MUCINEX [Concomitant]
  27. HIZENTRA [Suspect]
  28. LOVASTATIN [Concomitant]
  29. HIZENTRA [Suspect]
  30. METOPROLOL TARTRATE [Concomitant]

REACTIONS (12)
  - PRURITUS [None]
  - DYSPNOEA [None]
  - TACHYCARDIA [None]
  - BACK PAIN [None]
  - HYPERTENSION [None]
  - INFUSION RELATED REACTION [None]
  - ANXIETY [None]
  - DIZZINESS [None]
  - FATIGUE [None]
  - ASTHENIA [None]
  - FLUSHING [None]
  - CHEST DISCOMFORT [None]
